FAERS Safety Report 16431024 (Version 1)
Quarter: 2019Q2

REPORT INFORMATION
  Report Type: Spontaneous
  Country: UA (occurrence: UA)
  Receive Date: 20190614
  Receipt Date: 20190614
  Transmission Date: 20190711
  Serious: Yes (Other)
  Sender: FDA-Public Use
  Company Number: UA-ROCHE-2333480

PATIENT
  Age: 52 Year
  Sex: Male

DRUGS (1)
  1. COPEGUS [Suspect]
     Active Substance: RIBAVIRIN
     Indication: OFF LABEL USE
     Route: 048
     Dates: start: 20180503

REACTIONS (2)
  - Yellow skin [Recovering/Resolving]
  - Ocular icterus [Recovering/Resolving]

NARRATIVE: CASE EVENT DATE: 20180514
